FAERS Safety Report 5388981-3 (Version None)
Quarter: 2007Q3

REPORT INFORMATION
  Report Type: 
  Country: None (occurrence: None)
  Receive Date: 20070703
  Receipt Date: 20070330
  Transmission Date: 20080115
  Serious: No
  Sender: FDA-Public Use
  Company Number: 2007PV032701

PATIENT
  Age: 61 Year
  Sex: Female

DRUGS (4)
  1. SYMLIN [Suspect]
     Indication: WEIGHT DECREASED
     Dosage: 120 MCG;TID;SC
     Route: 058
     Dates: start: 20070201
  2. NOVOLOG [Concomitant]
  3. LANTUS [Concomitant]
  4. ASPIRIN [Concomitant]

REACTIONS (3)
  - DECREASED APPETITE [None]
  - INJECTION SITE BRUISING [None]
  - INJECTION SITE PAIN [None]
